FAERS Safety Report 4478945-6 (Version None)
Quarter: 2004Q4

REPORT INFORMATION
  Report Type: 
  Country: None (occurrence: None)
  Receive Date: 20041014
  Receipt Date: 20041001
  Transmission Date: 20050328
  Serious: Yes (Hospitalization)
  Sender: FDA-Public Use
  Company Number: 2004236818FR

PATIENT
  Age: 83 Year
  Sex: Female

DRUGS (10)
  1. ALDALIX (SPIRONOLACTONE, FUROSEMIDE) TABLET [Suspect]
     Indication: CARDIOVASCULAR DISORDER
     Dosage: 1 DF DAILY, ORAL
     Route: 048
     Dates: end: 20040423
  2. NIMESULFIDE DOROM (NIMESULIDE) TABLET [Suspect]
     Dosage: ORAL
     Route: 048
     Dates: start: 20040308, end: 20040326
  3. CALAN [Suspect]
     Indication: CARDIOVASCULAR DISORDER
     Dosage: 1 DF, QD, ORAL
     Route: 048
     Dates: end: 20040421
  4. TARKA [Suspect]
     Indication: CARDIOVASCULAR DISORDER
     Dosage: 1 DF, QD, ORAL
     Route: 048
     Dates: end: 20040421
  5. NICARDIPINE HCL [Suspect]
     Indication: CARDIOVASCULAR DISORDER
     Dosage: 100 MG, EVERY DAY, ORAL
     Route: 048
  6. ACETAMINOPHEN [Suspect]
     Dosage: 500 MG, ORAL
     Route: 048
     Dates: start: 20040308, end: 20040326
  7. TETRAZEPAM (TETRAZEPAM) [Concomitant]
     Dosage: 50 MG, ORAL
     Route: 048
     Dates: start: 20040308, end: 20040326
  8. ACETYLSALICYLATE LYSINE [Concomitant]
  9. DIGOXIN [Concomitant]
  10. EUPHYLLINE [Concomitant]

REACTIONS (5)
  - DERMATITIS EXFOLIATIVE [None]
  - ERYTHEMA [None]
  - FACE OEDEMA [None]
  - PYREXIA [None]
  - TOXIC SKIN ERUPTION [None]
